FAERS Safety Report 16475393 (Version 1)
Quarter: 2019Q2

REPORT INFORMATION
  Report Type: Spontaneous
  Country: US (occurrence: US)
  Receive Date: 20190515
  Receipt Date: 20190515
  Transmission Date: 20190711
  Serious: Yes (Hospitalization)
  Sender: FDA-Public Use
  Company Number: None

PATIENT
  Age: 80 Year
  Sex: Male

DRUGS (1)
  1. WARFARIN [Suspect]
     Active Substance: WARFARIN
     Indication: ATRIAL FIBRILLATION
     Route: 048

REACTIONS (6)
  - Asthenia [None]
  - Rectal haemorrhage [None]
  - Vomiting [None]
  - Nausea [None]
  - Melaena [None]
  - Loss of consciousness [None]

NARRATIVE: CASE EVENT DATE: 20180628
